FAERS Safety Report 7202432 (Version 2)
Quarter: 2020Q3

REPORT INFORMATION
  Report Type: Spontaneous
  Country: GB (occurrence: GB)
  Receive Date: 20091207
  Receipt Date: 20200707
  Transmission Date: 20201103
  Serious: Yes (Death)
  Sender: FDA-Public Use
  Company Number: GXKR2009GB12936

PATIENT
  Age: 71 Year
  Sex: Female

DRUGS (1)
  1. AMOXICILLIN. [Suspect]
     Active Substance: AMOXICILLIN
     Indication: UPPER RESPIRATORY TRACT INFECTION
     Dosage: UNK
     Route: 065

REACTIONS (13)
  - Haematochezia [Fatal]
  - Toxic epidermal necrolysis [Fatal]
  - Eye pain [Fatal]
  - Blister [Fatal]
  - Stevens-Johnson syndrome [Fatal]
  - Diarrhoea [Fatal]
  - Erosive oesophagitis [Fatal]
  - Gastritis erosive [Fatal]
  - Lip erosion [Fatal]
  - Hypothermia [Fatal]
  - Genital erosion [Fatal]
  - Streptococcal infection [Fatal]
  - Abdominal distension [Fatal]
